FAERS Safety Report 8835460 (Version 2)
Quarter: 2012Q4

REPORT INFORMATION
  Report Type: 
  Country: US (occurrence: US)
  Receive Date: 20121011
  Receipt Date: 20121019
  Transmission Date: 20130627
  Serious: Yes (Other)
  Sender: FDA-Public Use
  Company Number: US-009507513-1203USA01340

PATIENT

DRUGS (1)
  1. FOSAMAX [Suspect]
     Route: 048
     Dates: start: 200401, end: 201102

REACTIONS (9)
  - Intramedullary rod insertion [Recovered/Resolved]
  - Femur fracture [Unknown]
  - Femur fracture [Recovered/Resolved]
  - Low turnover osteopathy [Unknown]
  - Hypertension [Unknown]
  - Nephrolithiasis [Unknown]
  - Osteoporosis [Unknown]
  - Foot fracture [Unknown]
  - Gastrooesophageal reflux disease [Unknown]
